FAERS Safety Report 9728506 (Version 3)
Quarter: 2014Q1

REPORT INFORMATION
  Report Type: Spontaneous
  Country: ES (occurrence: ES)
  Receive Date: 20131204
  Receipt Date: 20140214
  Transmission Date: 20141002
  Serious: Yes (Life-Threatening, Hospitalization, Other)
  Sender: FDA-Public Use
  Company Number: ES-ABBVIE-13P-144-1174551-00

PATIENT
  Age: 63 Year
  Sex: Male

DRUGS (11)
  1. HUMIRA [Suspect]
     Indication: PSORIASIS
     Route: 058
     Dates: start: 20110506, end: 20110712
  2. HUMIRA [Suspect]
     Route: 058
     Dates: start: 20120918, end: 20131016
  3. RIFAMPICIN [Suspect]
     Indication: PRODUCT USED FOR UNKNOWN INDICATION
     Dates: start: 20110927, end: 201203
  4. EPANUTIN [Concomitant]
     Indication: EPILEPSY
     Route: 048
     Dates: start: 1990
  5. MYSOLINE [Concomitant]
     Indication: EPILEPSY
     Route: 048
     Dates: start: 1990
  6. ADIRO [Concomitant]
     Indication: DYSLIPIDAEMIA
  7. CRESTOR [Concomitant]
     Indication: DYSLIPIDAEMIA
  8. BONVIVA [Concomitant]
     Indication: ARTHROPATHY
  9. HEMOVAS [Concomitant]
     Indication: DYSLIPIDAEMIA
  10. GRIZOLEN [Concomitant]
     Indication: EPILEPSY
     Dates: start: 1990
  11. CEMIDON B6 [Concomitant]
     Indication: TUBERCULOSIS
     Dates: start: 20110405, end: 20110712

REACTIONS (7)
  - Lung adenocarcinoma [Recovering/Resolving]
  - Psoriasis [Unknown]
  - Hypertransaminasaemia [Unknown]
  - Arthralgia [Unknown]
  - Myalgia [Unknown]
  - Malaise [Unknown]
  - Malaise [Unknown]
